FAERS Safety Report 4597999-X (Version None)
Quarter: 2005Q1

REPORT INFORMATION
  Report Type: 
  Country: None (occurrence: None)
  Receive Date: 20050209
  Receipt Date: 20040301
  Transmission Date: 20050727
  Serious: Yes (Hospitalization)
  Sender: FDA-Public Use
  Company Number: 360527

PATIENT
  Age: 86 Year
  Sex: Male
  Weight: 100 kg

DRUGS (2)
  1. TORADOL [Suspect]
     Indication: PAIN
     Dates: start: 20040120, end: 20040121
  2. WARFARIN SODIUM [Concomitant]

REACTIONS (1)
  - GASTROINTESTINAL HAEMORRHAGE [None]
